FAERS Safety Report 11366622 (Version 1)
Quarter: 2015Q3

REPORT INFORMATION
  Report Type: Spontaneous
  Country: US (occurrence: US)
  Receive Date: 20150811
  Receipt Date: 20150811
  Transmission Date: 20151125
  Serious: No
  Sender: FDA-Public Use
  Company Number: US-ELI_LILLY_AND_COMPANY-US201303001560

PATIENT
  Sex: Male
  Weight: 82 kg

DRUGS (4)
  1. VITAMIN D+A [Concomitant]
  2. SCHIFF MOVE FREE [Concomitant]
     Active Substance: CHONDROITIN SULFATE A\GLUCOSAMINE
  3. ALEVE [Concomitant]
     Active Substance: NAPROXEN SODIUM
  4. AXIRON [Suspect]
     Active Substance: TESTOSTERONE
     Indication: BLOOD TESTOSTERONE DECREASED
     Dosage: 30 MG, QD
     Route: 061
     Dates: start: 20130225

REACTIONS (3)
  - Erectile dysfunction [Unknown]
  - Depressed mood [Not Recovered/Not Resolved]
  - Drug ineffective [Not Recovered/Not Resolved]
